FAERS Safety Report 9894256 (Version 2)
Quarter: 2014Q1

REPORT INFORMATION
  Report Type: Spontaneous
  Country: US (occurrence: US)
  Receive Date: 20140213
  Receipt Date: 20140306
  Transmission Date: 20141002
  Serious: Yes (Other)
  Sender: FDA-Public Use
  Company Number: US-GLAXOSMITHKLINE-A1060016A

PATIENT
  Sex: Female

DRUGS (6)
  1. ADVAIR [Suspect]
     Indication: PRODUCT USED FOR UNKNOWN INDICATION
     Dosage: 1PUFF TWICE PER DAY
     Route: 055
     Dates: start: 201310, end: 201401
  2. STELAZINE [Concomitant]
  3. LOSARTAN [Concomitant]
  4. AMLODIPINE [Concomitant]
  5. CARVEDILOL [Concomitant]
  6. OXYGEN [Concomitant]

REACTIONS (9)
  - Abasia [Unknown]
  - Oxygen supplementation [Unknown]
  - Pain in extremity [Unknown]
  - Musculoskeletal disorder [Unknown]
  - Abasia [Unknown]
  - General physical health deterioration [Unknown]
  - Tenderness [Unknown]
  - Wheelchair user [Unknown]
  - Muscle disorder [Unknown]
